FAERS Safety Report 7416298-1 (Version None)
Quarter: 2011Q2

REPORT INFORMATION
  Report Type: 
  Country: None (occurrence: None)
  Receive Date: 20110414
  Receipt Date: 20110405
  Transmission Date: 20111010
  Serious: Yes (Hospitalization, Other)
  Sender: FDA-Public Use
  Company Number: FR-ELI_LILLY_AND_COMPANY-FR201008007570

PATIENT
  Age: 65 Year
  Sex: Male

DRUGS (7)
  1. PLAVIX [Concomitant]
     Dosage: UNK, UNKNOWN
     Route: 048
     Dates: start: 20100822, end: 20100823
  2. ASPEGIC 325 [Concomitant]
  3. EFFIENT [Suspect]
     Indication: MYOCARDIAL INFARCTION
     Dosage: UNK, UNKNOWN
     Route: 048
     Dates: start: 20100823, end: 20100825
  4. LOVENOX [Concomitant]
  5. DIPROSONE [Concomitant]
  6. POLARAMINE [Concomitant]
  7. NITROGLYCERIN [Concomitant]

REACTIONS (4)
  - PYREXIA [None]
  - CROSS SENSITIVITY REACTION [None]
  - DERMATITIS EXFOLIATIVE [None]
  - PRURITUS [None]
